FAERS Safety Report 4431162-8 (Version None)
Quarter: 2004Q3

REPORT INFORMATION
  Report Type: 
  Country: None (occurrence: None)
  Receive Date: 20040824
  Receipt Date: 20040811
  Transmission Date: 20050211
  Serious: Yes (Hospitalization)
  Sender: FDA-Public Use
  Company Number: FR-JNJFOC-20040606362

PATIENT
  Sex: Female

DRUGS (10)
  1. TOPALGIC [Suspect]
     Indication: DRUG USE FOR UNKNOWN INDICATION
     Route: 049
  2. AMLOR [Concomitant]
     Route: 049
  3. VASTAREL [Concomitant]
     Route: 049
  4. MOVICOL [Concomitant]
     Route: 049
  5. MOVICOL [Concomitant]
     Route: 049
  6. MOVICOL [Concomitant]
     Route: 049
  7. MOVICOL [Concomitant]
     Route: 049
  8. PREVISCAN [Concomitant]
     Route: 049
  9. ATARAX [Concomitant]
  10. LEVOTHYROXINE SODIUM [Concomitant]
     Route: 049

REACTIONS (10)
  - BLOOD CALCIUM DECREASED [None]
  - BRAIN SCAN ABNORMAL [None]
  - CEREBRAL ATROPHY [None]
  - CONFUSIONAL STATE [None]
  - DISORIENTATION [None]
  - ELECTROENCEPHALOGRAM ABNORMAL [None]
  - HALLUCINATION, VISUAL [None]
  - HYPONATRAEMIA [None]
  - INAPPROPRIATE ANTIDIURETIC HORMONE SECRETION [None]
  - METABOLIC DISORDER [None]
